FAERS Safety Report 10389784 (Version 1)
Quarter: 2014Q3

REPORT INFORMATION
  Report Type: Spontaneous
  Country: US (occurrence: None)
  Receive Date: 20140813
  Receipt Date: 20140813
  Transmission Date: 20150326
  Serious: Yes (Other)
  Sender: FDA-Public Use
  Company Number: AUR-APL-2014-08612

PATIENT
  Age: 57 Year
  Sex: Male
  Weight: 99.8 kg

DRUGS (6)
  1. TRAMADOL [Suspect]
     Active Substance: TRAMADOL
     Indication: EYE PAIN
  2. LYRICA [Suspect]
     Active Substance: PREGABALIN
     Indication: EYE PAIN
     Route: 048
     Dates: start: 201309
  3. ZOLPIDEM (ZOLPIDEM) [Suspect]
     Active Substance: ZOLPIDEM TARTRATE
     Indication: PRODUCT USED FOR UNKNOWN INDICATION
  4. LYRICA [Suspect]
     Active Substance: PREGABALIN
     Indication: GAIT DISTURBANCE
     Route: 048
     Dates: start: 201309
  5. MECLIZINE (MECLOZINE) [Concomitant]
  6. TRAMADOL [Suspect]
     Active Substance: TRAMADOL
     Indication: GAIT DISTURBANCE

REACTIONS (4)
  - Feeling abnormal [None]
  - Drug effect incomplete [None]
  - Somnambulism [None]
  - Lyme disease [None]

NARRATIVE: CASE EVENT DATE: 201407
